FAERS Safety Report 7074388-X (Version None)
Quarter: 2010Q4

REPORT INFORMATION
  Report Type: 
  Country: None (occurrence: None)
  Receive Date: 20101020
  Receipt Date: 20100927
  Transmission Date: 20110411
  Serious: Yes (Hospitalization)
  Sender: FDA-Public Use
  Company Number: 54973

PATIENT
  Age: 70 Year
  Sex: Female

DRUGS (1)
  1. HYLAND'S CALMS FORTE [Suspect]
     Indication: SLEEP DISORDER
     Dosage: 3 TABS @ NIGHT X 3 DAYS

REACTIONS (2)
  - FAECES DISCOLOURED [None]
  - ULCER HAEMORRHAGE [None]
